FAERS Safety Report 10407518 (Version 3)
Quarter: 2017Q2

REPORT INFORMATION
  Report Type: Spontaneous
  Country: BR (occurrence: BR)
  Receive Date: 20140825
  Receipt Date: 20170608
  Transmission Date: 20170829
  Serious: Yes (Hospitalization, Other)
  Sender: FDA-Public Use
  Company Number: BR-PFIZER INC-2014231244

PATIENT
  Age: 76 Year
  Sex: Female
  Weight: 62 kg

DRUGS (6)
  1. LATANOPROST. [Suspect]
     Active Substance: LATANOPROST
     Indication: GLAUCOMA
     Dosage: 1 DROP IN BOTH EYES AT NIGHT, 1X/DAY
     Dates: start: 2016
  2. XALATAN [Suspect]
     Active Substance: LATANOPROST
     Dosage: 1 DROP IN BOTH EYES AT NIGHT, 1X/DAY
     Route: 047
  3. XALATAN [Suspect]
     Active Substance: LATANOPROST
     Indication: INTRAOCULAR PRESSURE INCREASED
     Dosage: 1 DROP IN EACH EYE , 1X/DAY
     Route: 047
  4. XALATAN [Suspect]
     Active Substance: LATANOPROST
     Indication: GLAUCOMA
     Dosage: 1 DROP IN BOTH EYES IN THE MORNING AND 1 DROP IN BOTH AT BOTH EYES AT NIGHT
     Route: 047
     Dates: start: 2012, end: 2015
  5. XALATAN [Suspect]
     Active Substance: LATANOPROST
     Dosage: 5 MG, ONCE A DAY
     Route: 047
     Dates: start: 2010
  6. LACRIMA PLUS [Concomitant]
     Active Substance: DEXTRAN 70\HYPROMELLOSES
     Indication: INTRAOCULAR PRESSURE INCREASED

REACTIONS (11)
  - Skin discolouration [Not Recovered/Not Resolved]
  - Intraocular pressure increased [Not Recovered/Not Resolved]
  - Inappropriate schedule of drug administration [Not Recovered/Not Resolved]
  - Eye allergy [Unknown]
  - Cataract [Recovered/Resolved]
  - Diabetes mellitus [Not Recovered/Not Resolved]
  - Intraocular pressure fluctuation [Not Recovered/Not Resolved]
  - Product use issue [Not Recovered/Not Resolved]
  - Dry eye [Not Recovered/Not Resolved]
  - Visual impairment [Unknown]
  - Drug ineffective [Not Recovered/Not Resolved]

NARRATIVE: CASE EVENT DATE: 2010
